FAERS Safety Report 14537907 (Version 1)
Quarter: 2018Q1

REPORT INFORMATION
  Report Type: Report from Study
  Country: JP (occurrence: JP)
  Receive Date: 20180216
  Receipt Date: 20180216
  Transmission Date: 20180509
  Serious: Yes (Hospitalization, Other)
  Sender: FDA-Public Use
  Company Number: JP-BRISTOL-MYERS SQUIBB COMPANY-BMS-2017-108036

PATIENT
  Age: 81 Year
  Sex: Male
  Weight: 60.2 kg

DRUGS (3)
  1. IPILIMUMAB [Suspect]
     Active Substance: IPILIMUMAB
     Indication: MALIGNANT MELANOMA
     Dosage: 3 MG/KG, UNK
     Route: 065
     Dates: start: 20160818, end: 20160818
  2. OPDIVO [Suspect]
     Active Substance: NIVOLUMAB
     Indication: MALIGNANT MELANOMA
     Dosage: UNK
     Route: 065
  3. IPILIMUMAB [Suspect]
     Active Substance: IPILIMUMAB
     Indication: PRODUCT USED FOR UNKNOWN INDICATION
     Dosage: 3 MG/KG, UNK
     Route: 065
     Dates: start: 20161027, end: 20161027

REACTIONS (2)
  - Hypophysitis [Recovered/Resolved]
  - Acute kidney injury [Recovering/Resolving]

NARRATIVE: CASE EVENT DATE: 20161217
